FAERS Safety Report 16857393 (Version 1)
Quarter: 2019Q3

REPORT INFORMATION
  Report Type: Report from Study
  Country: CA (occurrence: CA)
  Receive Date: 20190926
  Receipt Date: 20190926
  Transmission Date: 20191005
  Serious: Yes (Other)
  Sender: FDA-Public Use
  Company Number: PHHY2017CA091726

PATIENT
  Age: 37 Year
  Sex: Female

DRUGS (3)
  1. GILENYA [Suspect]
     Active Substance: FINGOLIMOD HYDROCHLORIDE
     Dosage: UNK
     Route: 065
     Dates: end: 20190829
  2. GILENYA [Suspect]
     Active Substance: FINGOLIMOD HYDROCHLORIDE
     Indication: PRODUCT USED FOR UNKNOWN INDICATION
     Dosage: UNK
     Route: 048
     Dates: start: 20170619
  3. GILENYA [Suspect]
     Active Substance: FINGOLIMOD HYDROCHLORIDE
     Dosage: UNK
     Route: 065
     Dates: end: 201909

REACTIONS (15)
  - Myocardial infarction [Recovered/Resolved]
  - Fibromuscular dysplasia [Unknown]
  - Nasopharyngitis [Unknown]
  - Vertebral artery dissection [Unknown]
  - Blood pressure fluctuation [Unknown]
  - Visual impairment [Unknown]
  - Arterial injury [Unknown]
  - Oropharyngeal pain [Unknown]
  - Coronary artery dissection [Recovered/Resolved]
  - Respiratory tract congestion [Unknown]
  - Heart rate decreased [Unknown]
  - Headache [Recovered/Resolved]
  - Headache [Unknown]
  - Neutropenia [Unknown]
  - Vertebral lesion [Unknown]

NARRATIVE: CASE EVENT DATE: 201706
